FAERS Safety Report 9976911 (Version 1)
Quarter: 2014Q1

REPORT INFORMATION
  Report Type: Report from Study
  Country: US (occurrence: US)
  Receive Date: 20140306
  Receipt Date: 20140306
  Transmission Date: 20141002
  Serious: No
  Sender: FDA-Public Use
  Company Number: US-ABBVIE-13P-163-1166885-00

PATIENT
  Age: 64 Year
  Sex: Female

DRUGS (18)
  1. HUMIRA [Suspect]
     Indication: CROHN^S DISEASE
     Dates: start: 20131031, end: 20131031
  2. HUMIRA [Suspect]
  3. EFFEXOR [Concomitant]
     Indication: BIPOLAR DISORDER
  4. LAMICTAL [Concomitant]
     Indication: BIPOLAR DISORDER
  5. VALACYCLOVIR [Concomitant]
     Indication: ORAL HERPES
  6. DEXILANT [Concomitant]
     Indication: GASTROOESOPHAGEAL REFLUX DISEASE
  7. LOSARTAN [Concomitant]
     Indication: HYPERTENSION
  8. DESYREL [Concomitant]
     Indication: INSOMNIA
     Dosage: AT BED TIME
  9. DALMANE [Concomitant]
     Indication: INSOMNIA
     Dosage: AT BED TIME
  10. SYNTHROID [Concomitant]
     Indication: HYPOTHYROIDISM
  11. ASPIRIN [Concomitant]
     Indication: MYOCARDIAL INFARCTION
  12. ASPIRIN [Concomitant]
     Indication: PROPHYLAXIS
  13. PRAVASTATIN [Concomitant]
     Indication: BLOOD CHOLESTEROL INCREASED
  14. B 12 [Concomitant]
     Indication: VITAMIN SUPPLEMENTATION
  15. FISH OIL [Concomitant]
     Indication: SUPPLEMENTATION THERAPY
  16. CALCIUM CITRATE [Concomitant]
     Indication: MINERAL SUPPLEMENTATION
  17. RESTASIS [Concomitant]
     Indication: DRY EYE
     Dosage: EYE DROPS
  18. REFRESH [Concomitant]
     Indication: DRY EYE
     Dosage: EYE DROPS

REACTIONS (1)
  - Somnolence [Recovered/Resolved]
